FAERS Safety Report 7866720-1 (Version None)
Quarter: 2011Q4

REPORT INFORMATION
  Report Type: 
  Country: None (occurrence: None)
  Receive Date: 20111028
  Receipt Date: 20110729
  Transmission Date: 20120403
  Serious: No
  Sender: FDA-Public Use
  Company Number: US-GLAXOSMITHKLINE-A0939931A

PATIENT
  Age: 58 Year
  Sex: Female

DRUGS (2)
  1. ADVAIR DISKUS 100/50 [Suspect]
     Route: 055
     Dates: start: 20090612
  2. VENTOLIN [Suspect]
     Dosage: 90MCG UNKNOWN
     Route: 055
     Dates: start: 20110612

REACTIONS (2)
  - DRUG ADMINISTRATION ERROR [None]
  - DYSPNOEA [None]
